FAERS Safety Report 22685467 (Version 3)
Quarter: 2025Q1

REPORT INFORMATION
  Report Type: Spontaneous
  Country: BR (occurrence: BR)
  Receive Date: 20230710
  Receipt Date: 20250107
  Transmission Date: 20250408
  Serious: No
  Sender: CELLTRION
  Company Number: BR-CELLTRION INC.-2023BR013676

PATIENT

DRUGS (1)
  1. INFLIXIMAB [Suspect]
     Active Substance: INFLIXIMAB
     Indication: Juvenile idiopathic arthritis
     Route: 042

REACTIONS (4)
  - Pain [Unknown]
  - Joint swelling [Unknown]
  - Off label use [Unknown]
  - Intentional product use issue [Unknown]
